FAERS Safety Report 4454584-8 (Version None)
Quarter: 2004Q3

REPORT INFORMATION
  Report Type: 
  Country: None (occurrence: None)
  Receive Date: 20040823
  Receipt Date: 20040629
  Transmission Date: 20050211
  Serious: Yes (Other)
  Sender: FDA-Public Use
  Company Number: CIP04001310

PATIENT
  Age: 44 Year
  Sex: Female
  Weight: 65.3 kg

DRUGS (8)
  1. ASACOL [Suspect]
     Indication: COLITIS ULCERATIVE
     Dosage: 2400 MG DAILY, ORAL : 1200 MG, 3 DAILY, ORAL  : ORAL
     Route: 048
     Dates: start: 20000901, end: 20000901
  2. ASACOL [Suspect]
     Indication: COLITIS ULCERATIVE
     Dosage: 2400 MG DAILY, ORAL : 1200 MG, 3 DAILY, ORAL  : ORAL
     Route: 048
     Dates: start: 19990901, end: 20000918
  3. ASACOL [Suspect]
     Indication: COLITIS ULCERATIVE
     Dosage: 2400 MG DAILY, ORAL : 1200 MG, 3 DAILY, ORAL  : ORAL
     Route: 048
     Dates: start: 20001103, end: 20001201
  4. HYDROCORTISONE [Concomitant]
  5. IMODIUM A-D [Concomitant]
  6. MULTI-VITAMINS [Concomitant]
  7. IRON [Concomitant]
  8. AZULFIDINE [Concomitant]

REACTIONS (6)
  - ABDOMINAL DISTENSION [None]
  - ABDOMINAL PAIN [None]
  - BILE DUCT STENOSIS [None]
  - HYPERSENSITIVITY [None]
  - JAUNDICE [None]
  - PANCREATITIS CHRONIC [None]
